FAERS Safety Report 8072590-1 (Version None)
Quarter: 2012Q1

REPORT INFORMATION
  Report Type: 
  Country: None (occurrence: None)
  Receive Date: 20120126
  Receipt Date: 20120116
  Transmission Date: 20120608
  Serious: Yes (Death, Hospitalization)
  Sender: FDA-Public Use
  Company Number: KR-MILLENNIUM PHARMACEUTICALS, INC.-2011-01252

PATIENT

DRUGS (13)
  1. PREDNISOLONE [Concomitant]
     Indication: MULTIPLE MYELOMA
     Dosage: 45 MG, BID
     Route: 048
     Dates: start: 20110216, end: 20110219
  2. ZOLEDRONOC ACID [Concomitant]
     Indication: MULTIPLE MYELOMA
     Dosage: 4 MG, UNK
     Route: 042
     Dates: start: 20110326, end: 20110326
  3. FENTANYL [Concomitant]
     Indication: PAIN PROPHYLAXIS
     Dosage: 12 UG, UNK
     Route: 065
     Dates: start: 20110216, end: 20110323
  4. IPRATROPIUM BROMIDE [Concomitant]
     Indication: PROPHYLAXIS
     Dosage: 1 ML, QID
     Dates: start: 20110412, end: 20110501
  5. ACYCLOVIR [Concomitant]
     Indication: INFECTION PROPHYLAXIS
     Dosage: 200 MG, BID
     Route: 048
     Dates: start: 20110216, end: 20110323
  6. MUCOMYST [Concomitant]
     Indication: PROPHYLAXIS
     Dosage: 1 ML, QID
     Dates: start: 20110412, end: 20110501
  7. MELPHALAN [Concomitant]
     Indication: MULTIPLE MYELOMA
     Dosage: 6 MG, BID
     Route: 048
     Dates: start: 20110216, end: 20110219
  8. LEVOFLOXACIN [Concomitant]
     Indication: INFECTION PROPHYLAXIS
     Dosage: 500 MG, UNK
     Route: 042
     Dates: start: 20110327, end: 20110401
  9. FLUVOXAMINE MALEATE [Concomitant]
     Indication: SEDATIVE THERAPY
     Dosage: 50 MG, BID
     Route: 048
     Dates: start: 20110216, end: 20110323
  10. DEXAMETHASONE SODIUM PHOSPHATE [Concomitant]
     Indication: MULTIPLE MYELOMA
     Dosage: 40 MG, UNK
     Route: 042
     Dates: start: 20110324, end: 20110417
  11. ALPRAZOLAM [Concomitant]
     Dosage: 0.25 MG, UNK
     Route: 048
     Dates: start: 20110412, end: 20110420
  12. VELCADE [Suspect]
     Indication: MULTIPLE MYELOMA
     Dosage: 1.3 MG/M2, CYCLIC
     Route: 065
     Dates: start: 20110216, end: 20110421
  13. DIMENHYDRINATE [Concomitant]
     Indication: PROPHYLAXIS
     Dosage: 25 MG, BID
     Route: 048
     Dates: start: 20110216, end: 20110323

REACTIONS (2)
  - MENTAL STATUS CHANGES [None]
  - RESPIRATORY FAILURE [None]
